FAERS Safety Report 16636529 (Version 1)
Quarter: 2019Q3

REPORT INFORMATION
  Report Type: Spontaneous
  Country: US (occurrence: US)
  Receive Date: 20190613
  Receipt Date: 20190613
  Transmission Date: 20191004
  Serious: Yes (Other)
  Sender: FDA-Public Use
  Company Number: None

PATIENT
  Age: 65 Year
  Sex: Female
  Weight: 81.9 kg

DRUGS (7)
  1. APREPITANT. [Concomitant]
     Active Substance: APREPITANT
  2. DEXAMTHASONE [Concomitant]
     Active Substance: DEXAMETHASONE
  3. UDENYCA [Suspect]
     Active Substance: PEGFILGRASTIM-CBQV
     Route: 058
     Dates: start: 20190607
  4. 5FU [Concomitant]
     Active Substance: FLUOROURACIL
  5. LEUCOVORIN CA [Concomitant]
     Active Substance: LEUCOVORIN CALCIUM
  6. CAMPTOSAR [Concomitant]
     Active Substance: IRINOTECAN HYDROCHLORIDE
  7. OXALIPLATIN. [Concomitant]
     Active Substance: OXALIPLATIN

REACTIONS (2)
  - Trismus [None]
  - Oedema [None]

NARRATIVE: CASE EVENT DATE: 20190608
